FAERS Safety Report 24709378 (Version 2)
Quarter: 2024Q4

REPORT INFORMATION
  Report Type: Spontaneous
  Country: FR (occurrence: FR)
  Receive Date: 20241208
  Receipt Date: 20241212
  Transmission Date: 20250115
  Serious: Yes (Hospitalization, Other)
  Sender: AUROBINDO
  Company Number: FR-009507513-2409FRA008583

PATIENT
  Age: 73 Year
  Sex: Male
  Weight: 73 kg

DRUGS (16)
  1. SIMVASTATIN [Suspect]
     Active Substance: SIMVASTATIN
     Indication: Dyslipidaemia
     Dosage: 20 MILLIGRAM, ONCE A DAY
     Route: 048
     Dates: start: 20240513
  2. PEMBROLIZUMAB [Suspect]
     Active Substance: PEMBROLIZUMAB
     Indication: Metastatic malignant melanoma
     Dosage: 200 MILLIGRAM, Q3W CYCLE 1 DAY 1 (C1D1) - WEEK 1
     Route: 042
     Dates: start: 20231130, end: 20231130
  3. PEMBROLIZUMAB [Suspect]
     Active Substance: PEMBROLIZUMAB
     Dosage: 200 MILLIGRAM, Q3W C2D1 - WEEK 1
     Route: 042
     Dates: start: 20231221, end: 20231221
  4. PEMBROLIZUMAB [Suspect]
     Active Substance: PEMBROLIZUMAB
     Dosage: 200 MILLIGRAM, Q3W C3D1 - WEEK 1
     Route: 042
     Dates: start: 20240111, end: 20240111
  5. PEMBROLIZUMAB [Suspect]
     Active Substance: PEMBROLIZUMAB
     Dosage: 200 MILLIGRAM, Q3W C4D1 - WEEK 1
     Route: 042
     Dates: start: 20240628, end: 20240628
  6. ETIMUPEPIMUT ACETATE [Suspect]
     Active Substance: ETIMUPEPIMUT ACETATE
     Indication: Metastatic malignant melanoma
     Dosage: 85 MICROGRAM, Q3W, C1D1 - WEEK 1
     Route: 058
     Dates: start: 20231130, end: 20231130
  7. IMSAPEPIMUT HYDROCHLORIDE [Suspect]
     Active Substance: IMSAPEPIMUT HYDROCHLORIDE
     Dosage: 85 MICROGRAM, Q3W, C1D8 - WEEK 2
     Route: 058
     Dates: start: 20231208, end: 20231208
  8. ETIMUPEPIMUT ACETATE [Suspect]
     Active Substance: ETIMUPEPIMUT ACETATE
     Dosage: 85 MICROGRAM, Q3W, C2D1 - WEEK 4
     Route: 058
     Dates: start: 20231221, end: 20231221
  9. IMSAPEPIMUT HYDROCHLORIDE [Suspect]
     Active Substance: IMSAPEPIMUT HYDROCHLORIDE
     Dosage: 85 MICROGRAM, Q3W, C2D8 - WEEK 5
     Route: 058
     Dates: start: 20231228, end: 20231228
  10. ETIMUPEPIMUT ACETATE [Suspect]
     Active Substance: ETIMUPEPIMUT ACETATE
     Dosage: 85 MICROGRAM, Q3W, C3D1 - WEEK 7
     Route: 058
     Dates: start: 20240111, end: 20240111
  11. IMSAPEPIMUT HYDROCHLORIDE [Suspect]
     Active Substance: IMSAPEPIMUT HYDROCHLORIDE
     Dosage: 85 MICROGRAM, Q3W, C11D1 - WEEK 31
     Route: 058
     Dates: start: 20240628, end: 20240628
  12. OMEPRAZOLE [Concomitant]
     Active Substance: OMEPRAZOLE
     Indication: Hernia
     Dosage: UNK
     Route: 065
     Dates: start: 1980
  13. GAVISCON ES [Concomitant]
     Indication: Hernia
     Dosage: UNK
     Route: 065
     Dates: start: 1980
  14. ACETAMINOPHEN [Concomitant]
     Active Substance: ACETAMINOPHEN
     Indication: Pain
     Dosage: UNK
     Route: 065
     Dates: start: 202309
  15. PAROXETINE [Concomitant]
     Active Substance: PAROXETINE
     Indication: Anxiety
     Dosage: UNK
     Route: 065
     Dates: start: 202309
  16. LORMETAZEPAM [Concomitant]
     Active Substance: LORMETAZEPAM
     Indication: Anxiety
     Dosage: UNK
     Route: 065
     Dates: start: 2023

REACTIONS (2)
  - Autoimmune colitis [Not Recovered/Not Resolved]
  - Cytomegalovirus infection [Recovered/Resolved]

NARRATIVE: CASE EVENT DATE: 20240918
